FAERS Safety Report 9996057 (Version 1)
Quarter: 2014Q1

REPORT INFORMATION
  Report Type: Spontaneous
  Country: US (occurrence: None)
  Receive Date: 20140221
  Receipt Date: 20140221
  Transmission Date: 20141002
  Serious: No
  Sender: FDA-Public Use
  Company Number: 1000051590

PATIENT
  Age: 61 Year
  Sex: Female

DRUGS (1)
  1. TUDORZA PRESSAIR (ACLIDINIUM BROMIDE) (400 MICROGRAM, POWDER) [Suspect]
     Indication: CHRONIC OBSTRUCTIVE PULMONARY DISEASE
     Route: 055
     Dates: start: 20131119, end: 20131119

REACTIONS (5)
  - Hypoaesthesia [None]
  - Paraesthesia [None]
  - Paraesthesia oral [None]
  - Dysarthria [None]
  - Staring [None]
